FAERS Safety Report 11996222 (Version 1)
Quarter: 2016Q1

REPORT INFORMATION
  Report Type: Spontaneous
  Country: US (occurrence: US)
  Receive Date: 20160203
  Receipt Date: 20160203
  Transmission Date: 20160526
  Serious: No
  Sender: FDA-Public Use
  Company Number: US-GALDERMA-US15002053

PATIENT
  Age: 17 Year
  Sex: Female

DRUGS (5)
  1. ALOE VERA FACE WASH [Concomitant]
     Indication: THERAPEUTIC SKIN CARE TOPICAL
     Route: 061
  2. TAC CREAM [Concomitant]
     Dosage: 1%
     Route: 061
     Dates: start: 20150410
  3. EPIDUO [Suspect]
     Active Substance: ADAPALENE\BENZOYL PEROXIDE
     Indication: ACNE
     Dosage: 0.1%/2.5%
     Route: 061
     Dates: start: 20150408, end: 20150410
  4. ESTEE LAUDER MOISTURIZER WITH SPF 15 [Concomitant]
     Indication: DRY SKIN PROPHYLAXIS
     Route: 061
  5. ESTEE LAUDER MOISTURIZER WITH SPF 15 [Concomitant]
     Indication: PROPHYLAXIS AGAINST SOLAR RADIATION

REACTIONS (5)
  - Erythema [Recovered/Resolved]
  - Pain of skin [Recovered/Resolved]
  - Skin burning sensation [Recovered/Resolved]
  - Skin exfoliation [Recovered/Resolved]
  - Swelling face [Recovered/Resolved]

NARRATIVE: CASE EVENT DATE: 20150410
